FAERS Safety Report 23326272 (Version 1)
Quarter: 2023Q4

REPORT INFORMATION
  Report Type: Spontaneous
  Country: US (occurrence: None)
  Receive Date: 20231220
  Receipt Date: 20231220
  Transmission Date: 20240110
  Serious: Yes (Hospitalization)
  Sender: FDA-Public Use
  Company Number: None

PATIENT
  Age: 68 Year
  Sex: Female

DRUGS (5)
  1. OPSUMIT [Suspect]
     Active Substance: MACITENTAN
     Indication: Pulmonary arterial hypertension
     Dosage: FREQUENCY : DAILY;?
     Route: 048
     Dates: start: 202212
  2. UPTRAVI [Concomitant]
  3. TYVASO [Concomitant]
     Active Substance: TREPROSTINIL
  4. DPI MAIN KIT PWD [Concomitant]
  5. ADEMPAS [Concomitant]

REACTIONS (3)
  - Diarrhoea [None]
  - Hypotension [None]
  - Therapy cessation [None]

NARRATIVE: CASE EVENT DATE: 20231214
